APPROVED DRUG PRODUCT: SUBOXONE
Active Ingredient: BUPRENORPHINE HYDROCHLORIDE; NALOXONE HYDROCHLORIDE
Strength: EQ 2MG BASE;EQ 0.5MG BASE **Federal Register determination that product was not discontinued or withdrawn for safety or effectiveness reasons**
Dosage Form/Route: TABLET;SUBLINGUAL
Application: N020733 | Product #001
Applicant: INDIVIOR INC
Approved: Oct 8, 2002 | RLD: Yes | RS: No | Type: DISCN